FAERS Safety Report 6862119-5 (Version None)
Quarter: 2010Q3

REPORT INFORMATION
  Report Type: 
  Country: None (occurrence: None)
  Receive Date: 20100721
  Receipt Date: 20100707
  Transmission Date: 20110219
  Serious: Yes (Other)
  Sender: FDA-Public Use
  Company Number: PHHY2010US09589

PATIENT
  Age: 84 Year
  Sex: Female

DRUGS (5)
  1. RECLAST [Suspect]
     Indication: OSTEOPOROSIS
     Dosage: UNK
     Route: 042
     Dates: start: 20091204
  2. FOSAMAX [Concomitant]
     Indication: OSTEOPOROSIS
  3. ACTONEL [Concomitant]
     Indication: OSTEOPOROSIS
  4. BONIVA [Concomitant]
     Indication: OSTEOPOROSIS
  5. HYDROCHLOROTHIAZIDE [Concomitant]

REACTIONS (6)
  - ATRIAL FIBRILLATION [None]
  - DIARRHOEA [None]
  - DIZZINESS [None]
  - MUSCULOSKELETAL PAIN [None]
  - NAUSEA [None]
  - URINE CALCIUM DECREASED [None]
